FAERS Safety Report 16016187 (Version 1)
Quarter: 2019Q1

REPORT INFORMATION
  Report Type: Spontaneous
  Country: US (occurrence: US)
  Receive Date: 20190228
  Receipt Date: 20190228
  Transmission Date: 20190418
  Serious: Yes (Other)
  Sender: FDA-Public Use
  Company Number: US-PURDUE-USA-2019-0146177

PATIENT
  Sex: Male

DRUGS (1)
  1. DEXMETHYLPHENIDATE HCL [Suspect]
     Active Substance: DEXMETHYLPHENIDATE HYDROCHLORIDE
     Indication: PRODUCT USED FOR UNKNOWN INDICATION
     Route: 048

REACTIONS (6)
  - Hostility [Unknown]
  - Aggression [Unknown]
  - Head banging [Unknown]
  - Mood swings [Unknown]
  - Anger [Unknown]
  - Depression [Unknown]
